FAERS Safety Report 14502661 (Version 1)
Quarter: 2018Q1

REPORT INFORMATION
  Report Type: Report from Study
  Country: None (occurrence: US)
  Receive Date: 20180208
  Receipt Date: 20180208
  Transmission Date: 20180509
  Serious: Yes (Other)
  Sender: FDA-Public Use
  Company Number: US-ABBVIE-18K-163-2246383-00

PATIENT
  Sex: Male

DRUGS (1)
  1. HUMIRA [Suspect]
     Active Substance: ADALIMUMAB
     Indication: RHEUMATOID ARTHRITIS
     Route: 058

REACTIONS (5)
  - Chest pain [Recovered/Resolved]
  - Arterial injury [Recovered/Resolved]
  - Wound haemorrhage [Recovered/Resolved]
  - Mobility decreased [Unknown]
  - Liver disorder [Recovered/Resolved]
